FAERS Safety Report 4641993-7 (Version None)
Quarter: 2005Q2

REPORT INFORMATION
  Report Type: 
  Country: None (occurrence: None)
  Receive Date: 20050420
  Receipt Date: 20050406
  Transmission Date: 20051028
  Serious: Yes (Other)
  Sender: FDA-Public Use
  Company Number: USA050495002

PATIENT
  Age: 14 Year
  Sex: Female

DRUGS (3)
  1. STRATTERA [Suspect]
     Dosage: 80 MG DAY
  2. FLUOXETINE [Concomitant]
  3. REMERON (MIRTAZAPIEN ORIFARM) [Concomitant]

REACTIONS (2)
  - CONVULSION [None]
  - MYDRIASIS [None]
